FAERS Safety Report 13502931 (Version 1)
Quarter: 2017Q2

REPORT INFORMATION
  Report Type: Spontaneous
  Country: US (occurrence: US)
  Receive Date: 20170501
  Receipt Date: 20170501
  Transmission Date: 20170830
  Serious: No
  Sender: FDA-Public Use
  Company Number: None

PATIENT
  Age: 71 Year
  Sex: Female
  Weight: 58.97 kg

DRUGS (9)
  1. ALEVE [Concomitant]
     Active Substance: NAPROXEN SODIUM
  2. PROLIA [Suspect]
     Active Substance: DENOSUMAB
     Indication: OSTEOPOROSIS PROPHYLAXIS
     Dosage: FREQUENCY - 1 EVERY 6 MOS. INJECTION
     Dates: start: 201308, end: 20170221
  3. MULTIVITAMIN [Concomitant]
     Active Substance: VITAMINS
  4. L-LYSINE [Concomitant]
     Active Substance: LYSINE
  5. ASPIRIN. [Concomitant]
     Active Substance: ASPIRIN
  6. VITAMIN D [Concomitant]
     Active Substance: CHOLECALCIFEROL
  7. BENEDRILL [Concomitant]
  8. CALCIUM [Concomitant]
     Active Substance: CALCIUM
  9. ACYCLOVIR OINTMENT [Concomitant]
     Active Substance: ACYCLOVIR

REACTIONS (3)
  - Lip dry [None]
  - Herpes simplex [None]
  - Lip swelling [None]

NARRATIVE: CASE EVENT DATE: 20170223
